FAERS Safety Report 23377510 (Version 3)
Quarter: 2024Q1

REPORT INFORMATION
  Report Type: Spontaneous
  Country: CA (occurrence: CA)
  Receive Date: 20240108
  Receipt Date: 20240207
  Transmission Date: 20240410
  Serious: No
  Sender: FDA-Public Use
  Company Number: CA-PFIZER INC-202300445230

PATIENT
  Age: 47 Year
  Sex: Female

DRUGS (2)
  1. ABRILADA [Suspect]
     Active Substance: ADALIMUMAB-AFZB
     Indication: Crohn^s disease
     Dosage: 1 DF, WEEK 0: 160MG, WEEK 2: 80MG THEN 40 MG EVERY OTHER WEEK
     Route: 058
     Dates: start: 20231115
  2. ABRILADA [Suspect]
     Active Substance: ADALIMUMAB-AFZB
     Dosage: 1 DF, WEEK 0: 160MG, WEEK 2: 80MG THEN 40 MG EVERY OTHER WEEK
     Route: 058

REACTIONS (1)
  - Device defective [Unknown]
